FAERS Safety Report 19401238 (Version 1)
Quarter: 2021Q2

REPORT INFORMATION
  Report Type: Spontaneous
  Country: US (occurrence: US)
  Receive Date: 20210611
  Receipt Date: 20210611
  Transmission Date: 20210717
  Serious: Yes (Other)
  Sender: FDA-Public Use
  Company Number: US-SUN PHARMACEUTICAL INDUSTRIES LTD-2021R1-298303

PATIENT
  Age: 67 Year
  Sex: Female

DRUGS (1)
  1. DOXORUBICIN [Suspect]
     Active Substance: DOXORUBICIN
     Indication: PRODUCT USED FOR UNKNOWN INDICATION
     Dosage: UNK
     Route: 065
     Dates: start: 20210511

REACTIONS (6)
  - Flushing [Unknown]
  - Back pain [Unknown]
  - Arthralgia [Unknown]
  - Dyspnoea [Unknown]
  - Chills [Not Recovered/Not Resolved]
  - Chest pain [Unknown]
